FAERS Safety Report 8537541-1 (Version None)
Quarter: 2012Q3

REPORT INFORMATION
  Report Type: 
  Country: None (occurrence: None)
  Receive Date: 20120725
  Receipt Date: 20120718
  Transmission Date: 20120928
  Serious: Yes (Other)
  Sender: FDA-Public Use
  Company Number: US-US-EMD SERONO, INC.-7149622

PATIENT
  Sex: Female

DRUGS (1)
  1. REBIF [Suspect]
     Indication: MULTIPLE SCLEROSIS
     Route: 058
     Dates: start: 20060317

REACTIONS (9)
  - MUSCULAR WEAKNESS [None]
  - NERVE INJURY [None]
  - FALL [None]
  - FEELING ABNORMAL [None]
  - PERINEURIAL CYST [None]
  - BACK PAIN [None]
  - PARAESTHESIA [None]
  - INJECTION SITE HAEMATOMA [None]
  - INJECTION SITE PAIN [None]
